FAERS Safety Report 8781164 (Version 2)
Quarter: 2012Q4

REPORT INFORMATION
  Report Type: Report from Study
  Country: JP (occurrence: JP)
  Receive Date: 20120913
  Receipt Date: 20120926
  Transmission Date: 20130627
  Serious: Yes (Other)
  Sender: FDA-Public Use
  Company Number: JP-009507513-2012SP019399

PATIENT
  Age: 67 Year
  Sex: Female
  Weight: 47 kg

DRUGS (6)
  1. PEGINTERFERON ALFA-2B [Suspect]
     Indication: HEPATITIS C
     Dosage: 1.5 Microgram per kilogram, qw
     Route: 058
     Dates: start: 20120214, end: 20120215
  2. REBETOL [Suspect]
     Indication: HEPATITIS C
     Dosage: 400 mg, QD, cumulative dose 400 mg
     Route: 048
     Dates: start: 20120214, end: 20120215
  3. TELAVIC [Suspect]
     Indication: HEPATITIS C
     Dosage: 1500 mg, QD,Cumulative dose 1500 mg
     Route: 048
     Dates: start: 20120214, end: 20120215
  4. PARIET [Concomitant]
     Indication: EPIGASTRIC DISCOMFORT
     Dosage: 10 mg, qd
     Route: 048
  5. VOLTAREN [Concomitant]
     Indication: PYREXIA
     Dosage: 25 MG PER DAY PRN
     Route: 051
     Dates: start: 20120214, end: 20120215
  6. LIVACT [Concomitant]
     Indication: MALNUTRITION
     Dosage: 8.30 g, UNK
     Route: 048

REACTIONS (1)
  - Hypotension [Recovered/Resolved]
